FAERS Safety Report 11669422 (Version 1)
Quarter: 2015Q4

REPORT INFORMATION
  Report Type: Spontaneous
  Country: US (occurrence: US)
  Receive Date: 20151027
  Receipt Date: 20151027
  Transmission Date: 20160304
  Serious: No
  Sender: FDA-Public Use
  Company Number: US-ELI_LILLY_AND_COMPANY-US201004002180

PATIENT
  Sex: Male

DRUGS (6)
  1. LYRICA [Concomitant]
     Active Substance: PREGABALIN
     Dosage: 200 MG, 2/D
     Route: 065
  2. FORTEO [Suspect]
     Active Substance: TERIPARATIDE
     Indication: OSTEOPOROSIS
     Dosage: 20 UG, DAILY (1/D)
     Route: 065
     Dates: start: 20100101
  3. AMBIEN CR [Concomitant]
     Active Substance: ZOLPIDEM TARTRATE
     Dosage: 12.5 MG, EVERY NIGHT
     Route: 065
  4. VITAMIN C [Concomitant]
     Active Substance: ASCORBIC ACID
     Dosage: UNK, 2/D
     Route: 065
  5. VALIUM [Concomitant]
     Active Substance: DIAZEPAM
     Dosage: 10 MG, 3/D
     Route: 065
  6. CITRICAL [Concomitant]
     Active Substance: CALCIUM CITRATE
     Dosage: UNK, 2/D
     Route: 065

REACTIONS (1)
  - Hernia [Unknown]
